FAERS Safety Report 19960588 (Version 1)
Quarter: 2021Q4

REPORT INFORMATION
  Report Type: Spontaneous
  Country: BR (occurrence: BR)
  Receive Date: 20211015
  Receipt Date: 20211015
  Transmission Date: 20220303
  Serious: Yes (Hospitalization)
  Sender: FDA-Public Use
  Company Number: 2021A768137

PATIENT
  Sex: Female

DRUGS (1)
  1. XIGDUO XR [Suspect]
     Active Substance: DAPAGLIFLOZIN PROPANEDIOL\METFORMIN HYDROCHLORIDE
     Dosage: USES 5/1000MG BY HER OWN, AS SHE CANNOT BUY THE MEDICINE XIGDUO XR 10/1000MG
     Route: 048

REACTIONS (2)
  - Angiopathy [Unknown]
  - Intentional product misuse [Not Recovered/Not Resolved]
